FAERS Safety Report 8213839-1 (Version None)
Quarter: 2012Q1

REPORT INFORMATION
  Report Type: 
  Country: None (occurrence: None)
  Receive Date: 20120316
  Receipt Date: 20120307
  Transmission Date: 20120608
  Serious: No
  Sender: FDA-Public Use
  Company Number: US-BIOGENIDEC-2011BI029343

PATIENT
  Sex: Female

DRUGS (1)
  1. TYSABRI [Suspect]
     Indication: MULTIPLE SCLEROSIS
     Route: 042
     Dates: start: 20071228

REACTIONS (11)
  - MEMORY IMPAIRMENT [None]
  - GAIT DISTURBANCE [None]
  - ASTHENIA [None]
  - CHOKING [None]
  - CONSTIPATION [None]
  - FATIGUE [None]
  - OROPHARYNGEAL PAIN [None]
  - RESPIRATORY MUSCLE WEAKNESS [None]
  - DYSPHAGIA [None]
  - SALIVA ALTERED [None]
  - COGNITIVE DISORDER [None]
